FAERS Safety Report 16497496 (Version 2)
Quarter: 2025Q1

REPORT INFORMATION
  Report Type: Spontaneous
  Country: AU (occurrence: AU)
  Receive Date: 20190628
  Receipt Date: 20250320
  Transmission Date: 20250408
  Serious: Yes (Other)
  Sender: MYLAN
  Company Number: AU-MYLANLABS-2019M1059198

PATIENT
  Sex: Male
  Weight: 118 kg

DRUGS (11)
  1. CLOZARIL [Suspect]
     Active Substance: CLOZAPINE
     Indication: Schizophrenia
     Dosage: 250 MILLIGRAM, PM (NOCTE)
     Dates: start: 20190524, end: 20190613
  2. PALIPERIDONE [Concomitant]
     Active Substance: PALIPERIDONE
     Dosage: 350 MILLIGRAM, Q3MONTHS (3/12)
  3. OLANZAPINE [Concomitant]
     Active Substance: OLANZAPINE
     Dosage: 300 MILLIGRAM, MONTHLY (EVERY 4/52)
  4. LITHIUM [Concomitant]
     Active Substance: LITHIUM
     Dosage: 1350 MILLIGRAM, PM (NOCTE)
  5. ATENOLOL [Concomitant]
     Active Substance: ATENOLOL
     Dosage: 50 MILLIGRAM, PM (NOCTE)
  6. METFORMIN [Concomitant]
     Active Substance: METFORMIN HYDROCHLORIDE
     Dosage: 1 GRAM, PM (NOCTE)
  7. THIAMINE [Concomitant]
     Active Substance: THIAMINE
     Dosage: 100 MILLIGRAM, PM (NOCTE)
  8. CHOLECALCIFEROL [Concomitant]
     Active Substance: CHOLECALCIFEROL
     Dosage: 50 MICROGRAM, PM (NOCTE)
  9. ALBUTEROL [Concomitant]
     Active Substance: ALBUTEROL
  10. EMPAGLIFLOZIN [Concomitant]
     Active Substance: EMPAGLIFLOZIN
     Dosage: 10 MILLIGRAM, AM (MANE)
  11. OLANZAPINE [Concomitant]
     Active Substance: OLANZAPINE

REACTIONS (4)
  - Troponin increased [Unknown]
  - Myocarditis [Unknown]
  - Malaise [Unknown]
  - Aberrant motor behaviour [Unknown]

NARRATIVE: CASE EVENT DATE: 20190101
